FAERS Safety Report 4325988-9 (Version None)
Quarter: 2004Q1

REPORT INFORMATION
  Report Type: 
  Country: None (occurrence: None)
  Receive Date: 20040329
  Receipt Date: 20040315
  Transmission Date: 20041129
  Serious: Yes (Other)
  Sender: FDA-Public Use
  Company Number: FR-GLAXOSMITHKLINE-B0327115A

PATIENT
  Age: 43 Year
  Sex: Female

DRUGS (1)
  1. NARAMIG [Suspect]
     Indication: MIGRAINE
     Dosage: 2.5MG SEE DOSAGE TEXT
     Route: 048
     Dates: start: 20020101, end: 20040308

REACTIONS (7)
  - ERYTHEMA [None]
  - MEDICATION ERROR [None]
  - PAIN IN EXTREMITY [None]
  - PERIPHERAL ISCHAEMIA [None]
  - RED BLOOD CELL COUNT DECREASED [None]
  - SCAR [None]
  - SKIN NECROSIS [None]
